FAERS Safety Report 8623017-X (Version None)
Quarter: 2012Q3

REPORT INFORMATION
  Report Type: 
  Country: None (occurrence: None)
  Receive Date: 20120813
  Receipt Date: 20120801
  Transmission Date: 20120928
  Serious: Yes (Hospitalization, Other)
  Sender: FDA-Public Use
  Company Number: DSA_47264_2011

PATIENT
  Sex: Female

DRUGS (31)
  1. AZITHROMYCIN [Concomitant]
  2. ATARAX [Concomitant]
  3. NIZORAL [Concomitant]
  4. ZYRTEC [Concomitant]
  5. ASPIRIN [Concomitant]
  6. PERCOCET [Concomitant]
  7. SENOKOT /00142205/ [Concomitant]
  8. SINGULAIR [Concomitant]
  9. RANITIDINE [Concomitant]
  10. METHYLPREDNISOLONE [Concomitant]
  11. ATIVAN [Concomitant]
  12. CORTISONE ACETATE [Concomitant]
  13. ALDARA [Concomitant]
  14. CEPHALEXIN [Concomitant]
  15. HYDROCODONE [Concomitant]
  16. LOPROX [Concomitant]
  17. ELIDEL [Suspect]
     Indication: ECZEMA
     Dosage: (DF TOPICAL)
     Route: 061
     Dates: start: 20030301
  18. PRENATAL VITAMINS /01549301/ [Concomitant]
  19. IBUPROFEN [Concomitant]
  20. TYLENOL (CAPLET) [Concomitant]
  21. CORDRAN [Concomitant]
  22. AMLODIPINE BESYLATE [Concomitant]
  23. SULFAMETHOXAZOLE [Concomitant]
  24. IBUPROFEN (ADVIL) [Concomitant]
  25. HYDROXYZINE [Concomitant]
  26. DOXYCYCLINE [Concomitant]
  27. NEULASTA [Concomitant]
  28. TRIAMCINOLONE [Concomitant]
  29. ARMODAFINIL [Concomitant]
  30. ZANTAC [Concomitant]
  31. MUPIROCIN [Concomitant]

REACTIONS (10)
  - HEPATOMEGALY [None]
  - PNEUMOTHORAX [None]
  - HODGKIN'S DISEASE [None]
  - MATERNAL EXPOSURE DURING PREGNANCY [None]
  - LARYNGOCELE [None]
  - DERMAL CYST [None]
  - SKIN INFECTION [None]
  - CAESAREAN SECTION [None]
  - ALOPECIA [None]
  - KELOID SCAR [None]
